FAERS Safety Report 6383387-2 (Version None)
Quarter: 2009Q4

REPORT INFORMATION
  Report Type: 
  Country: None (occurrence: None)
  Receive Date: 20091001
  Receipt Date: 20080904
  Transmission Date: 20100525
  Serious: Yes (Other)
  Sender: FDA-Public Use
  Company Number: ES-RANBAXY-2008RR-17629

PATIENT

DRUGS (2)
  1. AMOXICILLIN [Suspect]
     Indication: URINARY TRACT INFECTION
     Route: 042
  2. AMOXICILLIN [Suspect]
     Dosage: 1 G, UNK
     Route: 042
     Dates: start: 20060101

REACTIONS (1)
  - ARTERIOSPASM CORONARY [None]
